FAERS Safety Report 8268076 (Version 4)
Quarter: 2013Q4

REPORT INFORMATION
  Report Type: Spontaneous
  Country: US (occurrence: None)
  Receive Date: 20111122
  Receipt Date: 20131226
  Transmission Date: 20140711
  Serious: No
  Sender: FDA-Public Use
  Company Number: PHHY2011US58807

PATIENT
  Age: 32 Year
  Sex: Female

DRUGS (4)
  1. GILENYA [Suspect]
     Indication: MULTIPLE SCLEROSIS
     Route: 048
     Dates: start: 20110601
  2. ZOLOFT (SERTRALINE HYDROCHLORIDE) [Concomitant]
  3. ADDERALL [Concomitant]
  4. KLONOPIN [Concomitant]

REACTIONS (5)
  - Incorrect dose administered [None]
  - Fatigue [None]
  - Headache [None]
  - White blood cell count decreased [None]
  - Inappropriate schedule of drug administration [None]
